FAERS Safety Report 18012131 (Version 1)
Quarter: 2020Q3

REPORT INFORMATION
  Report Type: Report from Study
  Country: FR (occurrence: FR)
  Receive Date: 20200713
  Receipt Date: 20200713
  Transmission Date: 20201103
  Serious: Yes (Death, Other)
  Sender: FDA-Public Use
  Company Number: FR-AUROBINDO-AUR-APL-2020-034538

PATIENT

DRUGS (4)
  1. MELPHALAN. [Suspect]
     Active Substance: MELPHALAN
     Indication: MANTLE CELL LYMPHOMA
     Dosage: 140 MILLIGRAM/SQ. METER (ON DAY 2 OF ASCT)
     Route: 065
  2. BENDAMUSTINE [Suspect]
     Active Substance: BENDAMUSTINE
     Indication: MANTLE CELL LYMPHOMA
     Dosage: 200 MILLIGRAM/SQ. METER (ON DAYS 8 AND 7)
     Route: 065
  3. CYTARABINE. [Suspect]
     Active Substance: CYTARABINE
     Indication: MANTLE CELL LYMPHOMA
     Dosage: 200 MILLIGRAM/SQ. METER, TWO TIMES A DAY (FROM DAY 6 TO DAY 3)
     Route: 065
  4. ETOPOSIDE. [Suspect]
     Active Substance: ETOPOSIDE
     Indication: MANTLE CELL LYMPHOMA
     Dosage: 100 MILLIGRAM/SQ. METER, TWO TIMES A DAY (FROM DAY 6 TO DAY 3)
     Route: 065

REACTIONS (3)
  - Mucosal inflammation [Unknown]
  - Gastrointestinal bacterial infection [Fatal]
  - Sepsis [Fatal]
